FAERS Safety Report 22322458 (Version 1)
Quarter: 2023Q2

REPORT INFORMATION
  Report Type: Spontaneous
  Country: CN (occurrence: CN)
  Receive Date: 20230516
  Receipt Date: 20230516
  Transmission Date: 20230722
  Serious: Yes (Other)
  Sender: FDA-Public Use
  Company Number: CN-MTPC-MTPC2023-0012456

PATIENT
  Age: 64 Year
  Sex: Male

DRUGS (1)
  1. EDARAVONE [Suspect]
     Active Substance: EDARAVONE
     Indication: Cerebral infarction
     Dosage: 30 MILLIGRAM, BID
     Route: 065

REACTIONS (1)
  - Transaminases increased [Recovered/Resolved]
